FAERS Safety Report 5138369-5 (Version None)
Quarter: 2006Q4

REPORT INFORMATION
  Report Type: 
  Country: None (occurrence: None)
  Receive Date: 20061030
  Receipt Date: 20061009
  Transmission Date: 20070319
  Serious: Yes (Other)
  Sender: FDA-Public Use
  Company Number: FR-AVENTIS-200613505FR

PATIENT
  Age: 57 Year
  Sex: Male

DRUGS (7)
  1. TAXOTERE [Suspect]
     Indication: SQUAMOUS CELL CARCINOMA
     Route: 013
     Dates: start: 20060823, end: 20060913
  2. CISPLATIN [Suspect]
     Indication: SQUAMOUS CELL CARCINOMA
     Route: 013
     Dates: start: 20060823, end: 20060913
  3. VITAMIN B1 AND B6 [Concomitant]
  4. SOLUPRED                           /00016201/ [Concomitant]
  5. TOPALGIC [Concomitant]
  6. EFFERALGAN CODEINE [Concomitant]
  7. TRIFLUCAN [Concomitant]

REACTIONS (1)
  - SKIN NECROSIS [None]
